FAERS Safety Report 14195979 (Version 1)
Quarter: 2017Q4

REPORT INFORMATION
  Report Type: Spontaneous
  Country: FR (occurrence: FR)
  Receive Date: 20171116
  Receipt Date: 20171116
  Transmission Date: 20180321
  Serious: Yes (Other)
  Sender: FDA-Public Use
  Company Number: FR-MERCK KGAA-2034339

PATIENT
  Age: 69 Year
  Sex: Female

DRUGS (1)
  1. NOVOTHYROX [Suspect]
     Active Substance: LEVOTHYROXINE SODIUM
     Indication: PRODUCT USED FOR UNKNOWN INDICATION

REACTIONS (10)
  - Erythema [Unknown]
  - Nausea [Unknown]
  - Hyperthyroidism [Unknown]
  - Headache [Unknown]
  - Muscle spasms [Unknown]
  - Palpitations [Unknown]
  - Vertigo [Unknown]
  - Skin burning sensation [Unknown]
  - Gastrointestinal disorder [Unknown]
  - Dyspnoea [Unknown]

NARRATIVE: CASE EVENT DATE: 2017
